FAERS Safety Report 8033876-X (Version None)
Quarter: 2012Q1

REPORT INFORMATION
  Report Type: 
  Country: None (occurrence: None)
  Receive Date: 20120110
  Receipt Date: 20120106
  Transmission Date: 20120608
  Serious: Yes (Hospitalization, Other)
  Sender: FDA-Public Use
  Company Number: US-PFIZER INC-2010006408

PATIENT
  Sex: Male

DRUGS (2)
  1. AMBIEN [Concomitant]
     Indication: DEPRESSION
     Dosage: UNK
     Dates: start: 20060101, end: 20080101
  2. CHANTIX [Suspect]
     Indication: SMOKING CESSATION THERAPY
     Dosage: 1 MG, UNK
     Dates: start: 20071001, end: 20071108

REACTIONS (3)
  - EMOTIONAL DISTRESS [None]
  - INTENTIONAL OVERDOSE [None]
  - SUICIDE ATTEMPT [None]
